FAERS Safety Report 5557997-6 (Version None)
Quarter: 2007Q4

REPORT INFORMATION
  Report Type: 
  Country: None (occurrence: None)
  Receive Date: 20071214
  Receipt Date: 20071127
  Transmission Date: 20080405
  Serious: Yes (Hospitalization, Other)
  Sender: FDA-Public Use
  Company Number: CA-RANBAXY-2007US-11911

PATIENT

DRUGS (2)
  1. MINOCYCLINE HYDROCHLORIDE [Suspect]
     Indication: ACNE
     Route: 065
  2. TETRACYCLINE [Concomitant]
     Indication: DRUG USE FOR UNKNOWN INDICATION
     Dosage: UNK
     Route: 065

REACTIONS (8)
  - ANGIOEDEMA [None]
  - ARTHRALGIA [None]
  - CONJUNCTIVITIS [None]
  - DYSPNOEA [None]
  - LYMPHADENOPATHY [None]
  - PYREXIA [None]
  - SERUM SICKNESS [None]
  - URTICARIA [None]
